FAERS Safety Report 5457149-4 (Version None)
Quarter: 2007Q3

REPORT INFORMATION
  Report Type: 
  Country: None (occurrence: None)
  Receive Date: 20070918
  Receipt Date: 20070905
  Transmission Date: 20080115
  Serious: Yes (Hospitalization, Other)
  Sender: FDA-Public Use
  Company Number: CA-SHR-CA-2007-011799

PATIENT
  Age: 50 Year
  Sex: Female
  Weight: 59 kg

DRUGS (2)
  1. BETASERON [Suspect]
     Indication: RELAPSING-REMITTING MULTIPLE SCLEROSIS
     Dosage: 8 MIU, EVERY 2D
     Route: 058
     Dates: end: 20040302
  2. LOSEC                                   /CAN/ [Concomitant]
     Indication: GASTROINTESTINAL DISORDER THERAPY
     Dosage: 20 MG, UNK
     Route: 048

REACTIONS (2)
  - CHEST X-RAY ABNORMAL [None]
  - OVARIAN CANCER [None]
